FAERS Safety Report 21734337 (Version 1)
Quarter: 2022Q4

REPORT INFORMATION
  Report Type: Spontaneous
  Country: RU (occurrence: RU)
  Receive Date: 20221215
  Receipt Date: 20221215
  Transmission Date: 20230112
  Serious: Yes (Other)
  Sender: FDA-Public Use
  Company Number: RU-BAYER-2022P028558

PATIENT

DRUGS (1)
  1. STIVARGA [Suspect]
     Active Substance: REGORAFENIB
     Indication: Metastatic gastric cancer
     Dosage: 160 MG, UNK
     Dates: start: 2019

REACTIONS (2)
  - Metastatic gastric cancer [None]
  - Off label use [None]

NARRATIVE: CASE EVENT DATE: 20190101
